FAERS Safety Report 10016285 (Version 1)
Quarter: 2014Q1

REPORT INFORMATION
  Report Type: Spontaneous
  Country: DE (occurrence: DE)
  Receive Date: 20140317
  Receipt Date: 20140317
  Transmission Date: 20141002
  Serious: Yes (Other)
  Sender: FDA-Public Use
  Company Number: DE-BAYER-2014-039223

PATIENT
  Sex: Male

DRUGS (1)
  1. ASPIRIN N [Suspect]

REACTIONS (3)
  - Pharyngeal oedema [None]
  - Swollen tongue [None]
  - Dysphonia [None]
